FAERS Safety Report 9168086 (Version 2)
Quarter: 2013Q1

REPORT INFORMATION
  Report Type: Spontaneous
  Country: US (occurrence: None)
  Receive Date: 20130225
  Receipt Date: 20130318
  Transmission Date: 20140127
  Serious: Yes (Other)
  Sender: FDA-Public Use
  Company Number: 2013034734

PATIENT
  Sex: Female
  Weight: 73.48 kg

DRUGS (17)
  1. HIZENTRA [Suspect]
     Indication: IMMUNODEFICIENCY COMMON VARIABLE
     Dosage: (9 G 1X/WEEK, 1 GM FOR 2 TO 3 HOURS ON 3 SITES SUBCUTANEOUS)
     Route: 058
  2. ACETAMINOPHEN (PARACETAMOL) [Concomitant]
  3. DIPHENHYDRAMINE (DIPHENHYDRAMINE) [Concomitant]
  4. LMX (LIDOCAINE) [Concomitant]
  5. EFFEXOR XR (VENLAFAXINE HYDROCHLORIDE) [Concomitant]
  6. VALCYCLOVIR (VALGANCICLOVIR) [Concomitant]
  7. TAMOXIFEN [Concomitant]
  8. CLONAZEMPAM (CLONAZEPAM) [Concomitant]
  9. SIMVASTATIN (SIMVASTATIN) [Concomitant]
  10. PROMETHAZINE (PROMETHAZINE) [Concomitant]
  11. WELLBUTRIN (BUPROPION) [Concomitant]
  12. NEXIUM (ESOMEPRAZOLE MAGNESIUM) [Concomitant]
  13. LEVOTHYROXINE (LEVOTHYROXINE) [Concomitant]
  14. DOXEPIN (DOXEPIN) [Concomitant]
  15. TOPAMAX (TOPIRAMATE) [Concomitant]
  16. ABILIFY (ARIPIRAZOLE) [Concomitant]
  17. ACETAMINOPHEN\HYDROCODONE BITARTRATE [Concomitant]

REACTIONS (4)
  - Swelling [None]
  - Pruritus [None]
  - Urticaria [None]
  - Migraine [None]
